FAERS Safety Report 6263107-2 (Version None)
Quarter: 2009Q3

REPORT INFORMATION
  Report Type: 
  Country: None (occurrence: None)
  Receive Date: 20090708
  Receipt Date: 20090708
  Transmission Date: 20100115
  Serious: Yes (Other)
  Sender: FDA-Public Use
  Company Number: None

PATIENT
  Sex: Male
  Weight: 72.5755 kg

DRUGS (8)
  1. LAMOTRIGINE [Suspect]
     Indication: CONVULSION
     Dosage: 100 MG 2 TABS BID
     Dates: start: 20080701, end: 20090701
  2. TRILEPTAL [Suspect]
     Dosage: 300 MGS 4 1/2 PILLS Q AM + 2 1/2 PILLS Q PM
  3. FLUOXETINE HCL [Suspect]
     Dosage: 20 MG 1 TAB QD
  4. BACLOFEN [Suspect]
  5. ZANAFLEX [Concomitant]
  6. KEPPRA [Concomitant]
  7. ZONEGRAN [Concomitant]
  8. GABITRIL [Concomitant]

REACTIONS (2)
  - CONVULSION [None]
  - NO THERAPEUTIC RESPONSE [None]
